FAERS Safety Report 8393298-9 (Version None)
Quarter: 2012Q2

REPORT INFORMATION
  Report Type: 
  Country: None (occurrence: None)
  Receive Date: 20120529
  Receipt Date: 20120517
  Transmission Date: 20120825
  Serious: Yes (Life-Threatening, Hospitalization)
  Sender: FDA-Public Use
  Company Number: CO-ELI_LILLY_AND_COMPANY-CO201205006798

PATIENT
  Age: 72 Year
  Sex: Female

DRUGS (5)
  1. FORTEO [Suspect]
     Indication: OSTEOPOROSIS
     Dosage: 20 UG, QD
     Route: 058
  2. ENOXAPARIN [Concomitant]
     Dosage: UNK, UNKNOWN
     Route: 065
  3. DOLEX                              /00020001/ [Concomitant]
     Dosage: UNK, UNKNOWN
     Route: 065
  4. CALCIUM W/VITAMIN D NOS [Concomitant]
     Indication: SUPPLEMENTATION THERAPY
     Dosage: UNK, UNKNOWN
     Route: 065
  5. ENSURE                             /06184901/ [Concomitant]
     Dosage: UNK, UNKNOWN
     Route: 065

REACTIONS (3)
  - ASPHYXIA [None]
  - VOMITING [None]
  - HEADACHE [None]
